FAERS Safety Report 5520861-2 (Version None)
Quarter: 2007Q4

REPORT INFORMATION
  Report Type: 
  Country: None (occurrence: None)
  Receive Date: 20071119
  Receipt Date: 20071113
  Transmission Date: 20080405
  Serious: Yes (Death)
  Sender: FDA-Public Use
  Company Number: B0492870A

PATIENT
  Age: 74 Year
  Sex: Female
  Weight: 46 kg

DRUGS (12)
  1. ARIXTRA [Suspect]
     Indication: THROMBOSIS PROPHYLAXIS
     Dosage: 2.5MG PER DAY
     Route: 058
     Dates: start: 20071013, end: 20071018
  2. FLUMARIN [Concomitant]
     Dosage: 1G TWICE PER DAY
     Route: 042
     Dates: start: 20071011, end: 20071017
  3. LOXONIN [Concomitant]
     Dosage: 60MG THREE TIMES PER DAY
     Route: 048
     Dates: start: 20071011, end: 20071018
  4. SELBEX [Concomitant]
     Dosage: 50MG THREE TIMES PER DAY
     Route: 048
     Dates: start: 20071011, end: 20071018
  5. SOLULACT [Concomitant]
     Route: 042
     Dates: start: 20071011, end: 20071013
  6. UNKNOWN DRUG [Concomitant]
     Dosage: 15MG PER DAY
     Route: 030
     Dates: start: 20071011, end: 20071011
  7. VOLTAREN [Concomitant]
     Dosage: 25MG PER DAY
     Route: 054
     Dates: start: 20071011, end: 20071011
  8. AMLODIN [Concomitant]
     Indication: HYPERTENSION
     Route: 048
     Dates: start: 20070205
  9. SENNOSIDE [Concomitant]
     Route: 048
     Dates: start: 20071016, end: 20071018
  10. AMOBAN [Concomitant]
     Route: 048
     Dates: start: 20071012, end: 20071018
  11. FERROMIA [Concomitant]
     Route: 048
     Dates: start: 20071014, end: 20071018
  12. HICEE [Concomitant]
     Route: 048
     Dates: start: 20071014, end: 20071018

REACTIONS (7)
  - CEREBELLAR HAEMORRHAGE [None]
  - CHEYNE-STOKES RESPIRATION [None]
  - HEADACHE [None]
  - NECK PAIN [None]
  - RESPIRATORY ARREST [None]
  - VISION BLURRED [None]
  - VOMITING [None]
